FAERS Safety Report 24335809 (Version 2)
Quarter: 2024Q3

REPORT INFORMATION
  Report Type: Report from Study
  Country: FR (occurrence: FR)
  Receive Date: 20240919
  Receipt Date: 20240921
  Transmission Date: 20241017
  Serious: Yes (Death, Other)
  Sender: UNITED THERAPEUTICS
  Company Number: FR-UNITED THERAPEUTICS-UNT-2024-022290

PATIENT
  Age: 75 Year

DRUGS (1)
  1. TREPROSTINIL SODIUM [Suspect]
     Active Substance: TREPROSTINIL SODIUM
     Indication: Product used for unknown indication
     Dosage: UNK

REACTIONS (1)
  - Sudden death [Fatal]
